FAERS Safety Report 7199919-0 (Version None)
Quarter: 2010Q4

REPORT INFORMATION
  Report Type: 
  Country: None (occurrence: None)
  Receive Date: 20101228
  Receipt Date: 20101217
  Transmission Date: 20110411
  Serious: Yes (Other)
  Sender: FDA-Public Use
  Company Number: US-PFIZER INC-2010174630

PATIENT
  Sex: Male
  Weight: 90.7 kg

DRUGS (13)
  1. PRISTIQ [Suspect]
     Indication: DEPRESSION
     Dosage: 50 MG, 1X/DAY
     Route: 048
     Dates: start: 20101214
  2. XANAX [Concomitant]
     Indication: ANXIETY
     Dosage: 2 MG, 3X/DAY
     Route: 048
  3. LISINOPRIL AND HYDROCHLOROTHIAZIDE [Concomitant]
     Indication: HYPERTENSION
     Dosage: [LISINOPRIL, 20 MG]/[ HYDROCHLOROTHIAZIDE, 12.5 MG] ONCE DAILY
     Route: 048
  4. NIFEDIPINE [Concomitant]
     Indication: HYPERTENSION
     Dosage: 60 MG, 1X/DAY
     Route: 048
  5. OMEPRAZOLE [Concomitant]
     Indication: GASTROOESOPHAGEAL REFLUX DISEASE
     Dosage: 40 MG, 1X/DAY
     Route: 048
     Dates: start: 20101101
  6. DOXAZOSIN [Concomitant]
     Indication: PROSTATIC DISORDER
     Dosage: 4 MG, 1X/DAY
     Route: 048
  7. FINASTERIDE [Concomitant]
     Indication: PROSTATIC DISORDER
     Dosage: 5 MG, 1X/DAY
     Route: 048
  8. MELATONIN [Concomitant]
     Indication: SLEEP DISORDER
     Dosage: 10 MG, 1X/DAY
     Route: 048
     Dates: start: 20100101
  9. PYGEUM AFRICANUM [Concomitant]
     Indication: PROSTATIC DISORDER
     Dosage: 100 MG, 3X/DAY
     Route: 048
  10. VITAMIN E [Concomitant]
     Indication: SUPPLEMENTATION THERAPY
     Dosage: UNK
     Route: 048
  11. LOVAZA [Concomitant]
     Indication: SUPPLEMENTATION THERAPY
     Dosage: 1200 MG, UNK
     Route: 048
  12. PHOSPHATIDYL SERINE [Concomitant]
     Indication: MEMORY IMPAIRMENT
     Dosage: 100 MG, 3X/DAY
     Route: 048
  13. ROPINIROLE [Concomitant]
     Indication: RESTLESS LEGS SYNDROME
     Dosage: 1 MG, 2X/DAY
     Route: 048

REACTIONS (1)
  - VISION BLURRED [None]
